FAERS Safety Report 24136443 (Version 1)
Quarter: 2024Q3

REPORT INFORMATION
  Report Type: Spontaneous
  Country: US (occurrence: US)
  Receive Date: 20240725
  Receipt Date: 20240725
  Transmission Date: 20241016
  Serious: Yes (Other)
  Sender: RANBAXY
  Company Number: US-SUN PHARMACEUTICAL INDUSTRIES LTD-2024R1-458585

PATIENT
  Sex: Female

DRUGS (11)
  1. PREDNISONE [Suspect]
     Active Substance: PREDNISONE
     Indication: Blastic plasmacytoid dendritic cell neoplasia
     Route: 065
  2. DEXAMETHASONE [Suspect]
     Active Substance: DEXAMETHASONE
     Indication: Blastic plasmacytoid dendritic cell neoplasia
     Route: 065
  3. VINCRISTINE [Concomitant]
     Active Substance: VINCRISTINE
     Indication: Blastic plasmacytoid dendritic cell neoplasia
     Route: 065
  4. DAUNORUBICIN [Concomitant]
     Active Substance: DAUNORUBICIN
     Indication: Blastic plasmacytoid dendritic cell neoplasia
     Route: 065
  5. PEGASPARGASE [Concomitant]
     Active Substance: PEGASPARGASE
     Indication: Blastic plasmacytoid dendritic cell neoplasia
     Route: 065
  6. CYTARABINE [Concomitant]
     Active Substance: CYTARABINE
     Indication: Blastic plasmacytoid dendritic cell neoplasia
     Route: 037
  7. CYCLOPHOSPHAMIDE [Concomitant]
     Active Substance: CYCLOPHOSPHAMIDE
     Indication: Blastic plasmacytoid dendritic cell neoplasia
     Route: 065
  8. METHOTREXATE [Concomitant]
     Active Substance: METHOTREXATE
     Indication: Blastic plasmacytoid dendritic cell neoplasia
     Route: 065
  9. MERCAPTOPURINE [Concomitant]
     Active Substance: MERCAPTOPURINE
     Indication: Blastic plasmacytoid dendritic cell neoplasia
     Route: 065
  10. DOXORUBICIN [Concomitant]
     Active Substance: DOXORUBICIN
     Indication: Blastic plasmacytoid dendritic cell neoplasia
     Route: 065
  11. THIOGUANINE [Concomitant]
     Active Substance: THIOGUANINE
     Indication: Blastic plasmacytoid dendritic cell neoplasia
     Route: 065

REACTIONS (2)
  - Osteonecrosis [Unknown]
  - Hyperglycaemia [Unknown]
